FAERS Safety Report 17819951 (Version 1)
Quarter: 2020Q2

REPORT INFORMATION
  Report Type: Spontaneous
  Country: TH (occurrence: TH)
  Receive Date: 20200525
  Receipt Date: 20200525
  Transmission Date: 20200714
  Serious: Yes (Death)
  Sender: FDA-Public Use
  Company Number: TH-JNJFOC-20200517992

PATIENT
  Sex: Male

DRUGS (1)
  1. PARACETAMOL [Suspect]
     Active Substance: ACETAMINOPHEN
     Indication: PRODUCT USED FOR UNKNOWN INDICATION
     Dosage: INTENTIONALLY INGESTED 50 TABLETS OF 500 MG-IMMEDIATE RELEASE ACETAMINOPHEN (312.5 MG/KG) FOR SUICID
     Route: 048

REACTIONS (5)
  - Completed suicide [Fatal]
  - Intentional overdose [Fatal]
  - Haemolytic anaemia [Fatal]
  - Methaemoglobinaemia [Fatal]
  - Hepatic enzyme increased [Fatal]
